FAERS Safety Report 5711971-5 (Version None)
Quarter: 2008Q2

REPORT INFORMATION
  Report Type: 
  Country: None (occurrence: None)
  Receive Date: 20080417
  Receipt Date: 20080408
  Transmission Date: 20081010
  Serious: Yes (Hospitalization)
  Sender: FDA-Public Use
  Company Number: GXKR2008NL02934

PATIENT
  Age: 8 Year
  Sex: Male
  Weight: 21.9 kg

DRUGS (4)
  1. FUROSEMIDE [Suspect]
  2. PREDNISONE TAB [Concomitant]
  3. FOLIC ACID [Concomitant]
  4. OMEPRAZOLE [Concomitant]

REACTIONS (5)
  - ABDOMINAL PAIN [None]
  - FLANK PAIN [None]
  - HYDRONEPHROSIS [None]
  - PYELOCALIECTASIS [None]
  - VOMITING [None]
